FAERS Safety Report 8207361-6 (Version None)
Quarter: 2012Q1

REPORT INFORMATION
  Report Type: 
  Country: None (occurrence: None)
  Receive Date: 20120314
  Receipt Date: 20120201
  Transmission Date: 20120608
  Serious: No
  Sender: FDA-Public Use
  Company Number: US-GLAXOSMITHKLINE-A0964188A

PATIENT
  Age: 41 Year
  Sex: Female

DRUGS (1)
  1. NICORETTE (MINT) [Suspect]
     Indication: EX-TOBACCO USER
     Dates: start: 20120131, end: 20120131

REACTIONS (4)
  - BURNING SENSATION [None]
  - DYSPEPSIA [None]
  - PARAESTHESIA [None]
  - VOMITING [None]
